FAERS Safety Report 11835684 (Version 3)
Quarter: 2020Q1

REPORT INFORMATION
  Report Type: Spontaneous
  Country: PH (occurrence: PH)
  Receive Date: 20151215
  Receipt Date: 20200321
  Transmission Date: 20200409
  Serious: Yes (Other)
  Sender: FDA-Public Use
  Company Number: PH-JNJFOC-20151200706

PATIENT
  Age: 75 Year
  Sex: Female

DRUGS (2)
  1. PARACETAMOL [Suspect]
     Active Substance: ACETAMINOPHEN
     Indication: ARTHRALGIA
     Dosage: AS NEEDED. STARTED FEW DAYS BACK.
     Route: 065
  2. CANDESARTAN. [Concomitant]
     Active Substance: CANDESARTAN
     Indication: HYPERTENSION
     Route: 065

REACTIONS (1)
  - Pemphigoid [Recovering/Resolving]
